FAERS Safety Report 18179809 (Version 1)
Quarter: 2020Q3

REPORT INFORMATION
  Report Type: Spontaneous
  Country: US (occurrence: US)
  Receive Date: 20200820
  Receipt Date: 20200820
  Transmission Date: 20201103
  Serious: Yes (Hospitalization)
  Sender: FDA-Public Use
  Company Number: None

PATIENT
  Age: 64 Year
  Sex: Female
  Weight: 93.15 kg

DRUGS (22)
  1. AMLODIPINE [Concomitant]
     Active Substance: AMLODIPINE BESYLATE
  2. MELOXICAM. [Concomitant]
     Active Substance: MELOXICAM
  3. NASONEX [Concomitant]
     Active Substance: MOMETASONE FUROATE
  4. ACYCLOVIR. [Concomitant]
     Active Substance: ACYCLOVIR
  5. LASIX [Concomitant]
     Active Substance: FUROSEMIDE
  6. BELSOMRA [Concomitant]
     Active Substance: SUVOREXANT
  7. FLECAINIDE [Concomitant]
     Active Substance: FLECAINIDE
  8. LINZESS [Concomitant]
     Active Substance: LINACLOTIDE
  9. METOPROLOL. [Concomitant]
     Active Substance: METOPROLOL
  10. PANTOPRAZOLE [Concomitant]
     Active Substance: PANTOPRAZOLE
  11. PHENTERMINE. [Concomitant]
     Active Substance: PHENTERMINE
  12. SPRYCEL [Suspect]
     Active Substance: DASATINIB
     Indication: CHRONIC MYELOID LEUKAEMIA
     Route: 048
     Dates: start: 20190415
  13. ARICEPT [Concomitant]
     Active Substance: DONEPEZIL HYDROCHLORIDE
  14. BUPROPRION [Concomitant]
     Active Substance: BUPROPION
  15. CYCLOBENZAPRINE. [Concomitant]
     Active Substance: CYCLOBENZAPRINE
  16. DAILY VITAMIN [Concomitant]
     Active Substance: VITAMINS
  17. CLONIDINE. [Concomitant]
     Active Substance: CLONIDINE
  18. NORCO [Concomitant]
     Active Substance: ACETAMINOPHEN\HYDROCODONE BITARTRATE
  19. POTASSIUM [Concomitant]
     Active Substance: POTASSIUM
  20. AMITRIPTYLINE [Concomitant]
     Active Substance: AMITRIPTYLINE
  21. HYDRALAZINE [Concomitant]
     Active Substance: HYDRALAZINE HYDROCHLORIDE
  22. NEURONTIN [Concomitant]
     Active Substance: GABAPENTIN

REACTIONS (1)
  - Pneumonia [None]

NARRATIVE: CASE EVENT DATE: 20200820
